FAERS Safety Report 5825074-2 (Version None)
Quarter: 2008Q3

REPORT INFORMATION
  Report Type: 
  Country: None (occurrence: None)
  Receive Date: 20080729
  Receipt Date: 20080725
  Transmission Date: 20090109
  Serious: Yes (Life-Threatening)
  Sender: FDA-Public Use
  Company Number: JP-BRISTOL-MYERS SQUIBB COMPANY-14279178

PATIENT
  Age: 73 Year
  Sex: Male

DRUGS (2)
  1. TAXOL [Suspect]
     Indication: NON-SMALL CELL LUNG CANCER
     Dosage: THERAPY INITIATED ON 04-JUL-2008. THERAPY DURATION: 2 DAYS.
     Route: 041
     Dates: start: 20080711, end: 20080711
  2. CARBOMERCK [Suspect]
     Indication: NON-SMALL CELL LUNG CANCER
     Dosage: THERAPY INITIATED ON 4-JUL-2008. THERAPY DURATION: 2 DAYS
     Route: 041
     Dates: start: 20080711, end: 20080711

REACTIONS (2)
  - LEFT VENTRICULAR FAILURE [None]
  - PULMONARY OEDEMA [None]
